FAERS Safety Report 16473932 (Version 1)
Quarter: 2019Q2

REPORT INFORMATION
  Report Type: Report from Study
  Country: CA (occurrence: CA)
  Receive Date: 20190625
  Receipt Date: 20190625
  Transmission Date: 20190711
  Serious: No
  Sender: FDA-Public Use
  Company Number: CA-BEH-2019103456

PATIENT
  Sex: Female

DRUGS (2)
  1. HAEMATE P [Suspect]
     Active Substance: ANTIHEMOPHILIC FACTOR HUMAN
     Indication: VON WILLEBRAND^S FACTOR ACTIVITY ABNORMAL
     Dosage: 3000 UNK
     Route: 065
     Dates: start: 20190531
  2. HAEMATE P [Suspect]
     Active Substance: ANTIHEMOPHILIC FACTOR HUMAN
     Dosage: Q 24 HRS X 3 DOSES AND THEN ON POST PARTUM DAY 5
     Route: 065

REACTIONS (1)
  - Lactation disorder [Not Recovered/Not Resolved]

NARRATIVE: CASE EVENT DATE: 2019
